FAERS Safety Report 8409752-7 (Version None)
Quarter: 2012Q2

REPORT INFORMATION
  Report Type: 
  Country: None (occurrence: None)
  Receive Date: 20120529
  Receipt Date: 20120511
  Transmission Date: 20120825
  Serious: Yes (Other)
  Sender: FDA-Public Use
  Company Number: 2012-1013657

PATIENT
  Age: 70 Year
  Sex: Male
  Weight: 92.9874 kg

DRUGS (4)
  1. WARFARIN SODIUM [Suspect]
     Indication: PULMONARY THROMBOSIS
     Dosage: 5 MG;QD;PO
     Route: 048
     Dates: start: 20120215
  2. ZYRTEC [Concomitant]
  3. LISINOPRIL [Concomitant]
  4. HYDROCHLORTHIAZIDE [Concomitant]

REACTIONS (6)
  - BRONCHITIS [None]
  - DYSPEPSIA [None]
  - FATIGUE [None]
  - CHEST DISCOMFORT [None]
  - ATELECTASIS [None]
  - MUSCULOSKELETAL PAIN [None]
